FAERS Safety Report 12986425 (Version 4)
Quarter: 2017Q4

REPORT INFORMATION
  Report Type: Report from Study
  Country: CA (occurrence: CA)
  Receive Date: 20161130
  Receipt Date: 20171012
  Transmission Date: 20180320
  Serious: Yes (Hospitalization, Other)
  Sender: FDA-Public Use
  Company Number: CA-AMGEN-CANSL2016167624

PATIENT
  Age: 69 Year
  Sex: Female
  Weight: 57.28 kg

DRUGS (12)
  1. VITAMIN D [Concomitant]
     Active Substance: CHOLECALCIFEROL
     Dosage: 1000 IU, QD
     Route: 048
  2. COZAAR [Concomitant]
     Active Substance: LOSARTAN POTASSIUM
     Dosage: 50 MG, QD
  3. CALCIUM [Concomitant]
     Active Substance: CALCIUM
     Dosage: 500 UNK, BID
  4. CIPRALEX [Concomitant]
     Active Substance: ESCITALOPRAM OXALATE
     Dosage: 20 MG, QD
     Route: 048
  5. NASONEX [Concomitant]
     Active Substance: MOMETASONE FUROATE
     Dosage: 1 TO 2 SPRAYS, QD EACH NOSTRIL
     Route: 045
  6. EZETROL [Concomitant]
     Active Substance: EZETIMIBE
     Dosage: 10 MG, QD
  7. PNEUMOVAX 23 [Concomitant]
     Active Substance: PNEUMOCOCCAL VACCINE, POLYVALENT 23
     Dosage: UNK
     Dates: start: 20140422
  8. FLU [Concomitant]
     Active Substance: INFLUENZA VIRUS VACCINE
     Dosage: UNK
     Dates: start: 20151124
  9. PROLIA [Suspect]
     Active Substance: DENOSUMAB
     Indication: OSTEOPOROSIS POSTMENOPAUSAL
     Dosage: 60 MG/ML, UNK
     Route: 058
     Dates: start: 20110916, end: 20160923
  10. NORVASC [Concomitant]
     Active Substance: AMLODIPINE BESYLATE
     Dosage: 5 MG, UNK
  11. PMS-ZOPICLONE [Concomitant]
     Dosage: 7.5 MG, HALF QHS
  12. FLU [Concomitant]
     Active Substance: INFLUENZA VIRUS VACCINE
     Dosage: UNK

REACTIONS (16)
  - Muscle spasms [Unknown]
  - Oral neoplasm benign [Unknown]
  - Jaw fracture [Unknown]
  - Diarrhoea [Unknown]
  - Tooth infection [Recovering/Resolving]
  - Tooth impacted [Unknown]
  - Chills [Unknown]
  - Postoperative wound infection [Recovered/Resolved]
  - Pain [Not Recovered/Not Resolved]
  - Haematochezia [Unknown]
  - Impaired healing [Unknown]
  - Chromaturia [Recovered/Resolved]
  - Cyst [Unknown]
  - Hospitalisation [Unknown]
  - Weight decreased [Unknown]
  - Mastication disorder [Unknown]

NARRATIVE: CASE EVENT DATE: 2016
